FAERS Safety Report 25393081 (Version 1)
Quarter: 2025Q2

REPORT INFORMATION
  Report Type: Report from Study
  Country: US (occurrence: US)
  Receive Date: 20250604
  Receipt Date: 20250604
  Transmission Date: 20250716
  Serious: Yes (Other)
  Sender: ABBVIE
  Company Number: US-ABBVIE-5922555

PATIENT
  Age: 63 Year
  Sex: Female

DRUGS (1)
  1. HUMIRA [Suspect]
     Active Substance: ADALIMUMAB
     Indication: Rheumatoid arthritis
     Route: 058
     Dates: start: 20230721, end: 202503

REACTIONS (7)
  - Systemic lupus erythematosus [Unknown]
  - Rhinitis allergic [Recovering/Resolving]
  - Cyst [Recovering/Resolving]
  - Rheumatoid arthritis [Not Recovered/Not Resolved]
  - Fatigue [Not Recovered/Not Resolved]
  - Bronchitis [Unknown]
  - Nasopharyngitis [Not Recovered/Not Resolved]

NARRATIVE: CASE EVENT DATE: 20240905
